FAERS Safety Report 24056896 (Version 1)
Quarter: 2024Q3

REPORT INFORMATION
  Report Type: Spontaneous
  Country: IT (occurrence: IT)
  Receive Date: 20240706
  Receipt Date: 20240706
  Transmission Date: 20241017
  Serious: Yes (Death, Other)
  Sender: GENMAB
  Company Number: IT-GENMAB-2024-02385

PATIENT
  Age: 70 Year
  Sex: Male
  Weight: 60 kg

DRUGS (5)
  1. EPCORITAMAB [Suspect]
     Active Substance: EPCORITAMAB
     Indication: Diffuse large B-cell lymphoma
     Dosage: 3 DOSES GIVEN; DOSE GIVEN RIGHT BEFORE NEUROLOGIC EVENT: FULL (48 MG)
     Route: 065
     Dates: start: 20240502, end: 20240516
  2. LEVETIRACETAM [Concomitant]
     Active Substance: LEVETIRACETAM
     Indication: Seizure prophylaxis
     Dosage: 500 MG, FREQUENCY TEXT: ONCE EVERY 12 HOURS
     Dates: start: 20240505, end: 20240521
  3. PANTOPRAZOLE SODIUM [Concomitant]
     Active Substance: PANTOPRAZOLE SODIUM
     Indication: Gastrointestinal disorder prophylaxis
     Dosage: 40 MG, EVERY 1 DAYS
     Dates: start: 20240329, end: 20240521
  4. MORPHINE [Concomitant]
     Active Substance: MORPHINE
     Indication: Pain
     Dosage: 20 MG FREQUENCY TEXT: CONTINUOUS INFUSION
     Dates: start: 20240517, end: 20240521
  5. BISOPROLOL FUMARATE [Concomitant]
     Active Substance: BISOPROLOL FUMARATE
     Indication: Tachycardia
     Dosage: 2,5 MG +1,25 MG, FREQUENCY TEXT: ONCE EVERY 12 HOURS
     Dates: start: 20240214, end: 20240521

REACTIONS (2)
  - Diffuse large B-cell lymphoma [Fatal]
  - Immune effector cell-associated neurotoxicity syndrome [Recovered/Resolved]

NARRATIVE: CASE EVENT DATE: 20240101
